FAERS Safety Report 15336766 (Version 1)
Quarter: 2018Q3

REPORT INFORMATION
  Report Type: Report from Study
  Country: IT (occurrence: IT)
  Receive Date: 20180831
  Receipt Date: 20180831
  Transmission Date: 20181010
  Serious: Yes (Other)
  Sender: FDA-Public Use
  Company Number: IT-AMGEN-ITACT2010012262

PATIENT
  Age: 56 Year
  Sex: Male

DRUGS (1)
  1. ETANERCEPT [Suspect]
     Active Substance: ETANERCEPT
     Indication: PSORIATIC ARTHROPATHY
     Dosage: 50 MG, QWK
     Route: 058
     Dates: start: 20080930, end: 20101111

REACTIONS (2)
  - Squamous cell carcinoma of skin [Recovered/Resolved with Sequelae]
  - Keratoacanthoma [Recovered/Resolved with Sequelae]

NARRATIVE: CASE EVENT DATE: 20100920
